FAERS Safety Report 21212527 (Version 1)
Quarter: 2022Q3

REPORT INFORMATION
  Report Type: Spontaneous
  Country: US (occurrence: None)
  Receive Date: 20220813
  Receipt Date: 20220813
  Transmission Date: 20221027
  Serious: No
  Sender: FDA-Public Use
  Company Number: None

PATIENT
  Age: 25 Year
  Sex: Female
  Weight: 60.75 kg

DRUGS (1)
  1. PARAGARD T 380A [Suspect]
     Active Substance: COPPER
     Indication: Contraception
     Dates: start: 20190301, end: 20220812

REACTIONS (12)
  - Pelvic pain [None]
  - Dysmenorrhoea [None]
  - Nausea [None]
  - Vomiting [None]
  - Muscle spasms [None]
  - Alopecia [None]
  - Weight increased [None]
  - Migraine [None]
  - Anxiety [None]
  - Depression [None]
  - Embedded device [None]
  - Uterine perforation [None]
